FAERS Safety Report 5601975-5 (Version None)
Quarter: 2008Q1

REPORT INFORMATION
  Report Type: 
  Country: None (occurrence: None)
  Receive Date: 20080125
  Receipt Date: 20080118
  Transmission Date: 20080703
  Serious: Yes (Other)
  Sender: FDA-Public Use
  Company Number: AT-BAYER-200811165GPV

PATIENT
  Age: 80 Year
  Sex: Female

DRUGS (1)
  1. ULTRAVIST 370 MG J/ML / IOPROMIDE [Suspect]
     Indication: ANGIOGRAM

REACTIONS (2)
  - ERYTHEMA [None]
  - PRURITUS [None]
